FAERS Safety Report 13035844 (Version 2)
Quarter: 2017Q2

REPORT INFORMATION
  Report Type: Spontaneous
  Country: US (occurrence: US)
  Receive Date: 20161216
  Receipt Date: 20170504
  Transmission Date: 20170830
  Serious: No
  Sender: FDA-Public Use
  Company Number: US-PFIZER INC-2016573648

PATIENT
  Age: 86 Year
  Sex: Female

DRUGS (1)
  1. XELJANZ [Suspect]
     Active Substance: TOFACITINIB CITRATE
     Indication: RHEUMATOID ARTHRITIS
     Dosage: 5 MG, 2X/DAY (5MG IN THE MORNING AT 11 O^ CLOCK AND 5 MG LATER IN THE AFTERNOON AT 6 O^ CLOCK)

REACTIONS (6)
  - Arthralgia [Unknown]
  - Excessive cerumen production [Unknown]
  - Hypoacusis [Unknown]
  - Drug effect incomplete [Unknown]
  - Herpes zoster [Unknown]
  - Pyrexia [Unknown]

NARRATIVE: CASE EVENT DATE: 201608
